FAERS Safety Report 11533012 (Version 2)
Quarter: 2015Q4

REPORT INFORMATION
  Report Type: Spontaneous
  Country: IN (occurrence: IN)
  Receive Date: 20150921
  Receipt Date: 20151005
  Transmission Date: 20160304
  Serious: Yes (Other)
  Sender: FDA-Public Use
  Company Number: IN-BAUSCH-BL-2015-021951

PATIENT
  Age: 64 Year
  Sex: Female

DRUGS (6)
  1. NITROGLYCERIN. [Suspect]
     Active Substance: NITROGLYCERIN
     Indication: ARTERIAL SPASM
     Route: 013
  2. NITROGLYCERIN. [Suspect]
     Active Substance: NITROGLYCERIN
     Route: 013
  3. DILTIAZEM [Suspect]
     Active Substance: DILTIAZEM
     Indication: ARTERIAL SPASM
     Route: 013
  4. DILTIAZEM [Suspect]
     Active Substance: DILTIAZEM
     Route: 013
  5. NITROGLYCERIN. [Suspect]
     Active Substance: NITROGLYCERIN
     Route: 013
  6. DILTIAZEM [Suspect]
     Active Substance: DILTIAZEM
     Route: 013

REACTIONS (1)
  - Drug ineffective [Not Recovered/Not Resolved]
